FAERS Safety Report 21639184 (Version 2)
Quarter: 2023Q1

REPORT INFORMATION
  Report Type: Spontaneous
  Country: EG (occurrence: EG)
  Receive Date: 20221124
  Receipt Date: 20230210
  Transmission Date: 20230417
  Serious: Yes (Other)
  Sender: FDA-Public Use
  Company Number: EG-NOVOPROD-981334

PATIENT
  Age: 47 Year
  Sex: Female

DRUGS (3)
  1. LIBRAX [Concomitant]
     Active Substance: CHLORDIAZEPOXIDE HYDROCHLORIDE\CLIDINIUM BROMIDE
     Indication: Gastrointestinal disorder
     Dosage: 3 TABLETS BEFORE THE MEALS ( START FROM MONTH AND STOPPED FROM 10 DAYS)
     Route: 048
  2. MIXTARD HUMAN 70/30 [Suspect]
     Active Substance: INSULIN HUMAN
     Indication: Type 2 diabetes mellitus
     Dosage: 100 IU, QD (60U MORNING /40 U NIGHT)
     Route: 058
     Dates: start: 2014
  3. BENFOTIAMINE\CYANOCOBALAMIN\PYRIDOXINE HYDROCHLORIDE [Concomitant]
     Active Substance: BENFOTIAMINE\CYANOCOBALAMIN\PYRIDOXINE HYDROCHLORIDE
     Indication: Neuropathy peripheral
     Dosage: 1 TABLET (START FROM A MONTH)
     Route: 048

REACTIONS (8)
  - Retinal infiltrates [Unknown]
  - Visual impairment [Unknown]
  - Hyperglycaemia [Not Recovered/Not Resolved]
  - Device failure [Not Recovered/Not Resolved]
  - Device delivery system issue [Unknown]
  - Intentional dose omission [Unknown]
  - Dizziness [Recovered/Resolved]
  - Balance disorder [Recovered/Resolved]

NARRATIVE: CASE EVENT DATE: 20190101
